FAERS Safety Report 7946686 (Version 4)
Quarter: 2014Q1

REPORT INFORMATION
  Report Type: Report from Study
  Country: DE (occurrence: DE)
  Receive Date: 20110516
  Receipt Date: 20140219
  Transmission Date: 20141002
  Serious: Yes (Hospitalization)
  Sender: FDA-Public Use
  Company Number: PHHY2011DE39707

PATIENT
  Age: 54 Year
  Sex: Male
  Weight: 68 kg

DRUGS (5)
  1. ACZ885 [Suspect]
     Indication: CRYOPYRIN ASSOCIATED PERIODIC SYNDROME
     Dosage: 150 MG FOR EVERY 8TH WEEK
     Route: 058
     Dates: start: 20091110, end: 20110302
  2. AMLODIPINE [Concomitant]
     Dosage: 10 MG/DAY
     Route: 048
     Dates: start: 201006
  3. BISOPROLOL [Concomitant]
     Dosage: 10 MG/DAY
     Route: 048
     Dates: start: 201006
  4. LOSARTAN [Concomitant]
     Dosage: 100 MG/DAY
     Route: 048
     Dates: start: 201007
  5. HYDROCHLOROTHIAZIDE [Concomitant]
     Dosage: 12.5 MG/DAY
     Route: 048
     Dates: start: 201103

REACTIONS (1)
  - Cellulitis [Recovering/Resolving]
